FAERS Safety Report 10416536 (Version 2)
Quarter: 2014Q3

REPORT INFORMATION
  Report Type: Spontaneous
  Country: JP (occurrence: JP)
  Receive Date: 20140828
  Receipt Date: 20140904
  Transmission Date: 20150326
  Serious: Yes (Hospitalization)
  Sender: FDA-Public Use
  Company Number: JP-GLAXOSMITHKLINE-B1015686A

PATIENT
  Age: 25 Year
  Sex: Female

DRUGS (3)
  1. AMOBAN [Concomitant]
     Active Substance: ZOPICLONE
     Indication: INSOMNIA
     Route: 048
  2. LAMICTAL [Suspect]
     Active Substance: LAMOTRIGINE
     Indication: BIPOLAR DISORDER
     Dosage: 25MG ALTERNATE DAYS
     Route: 048
     Dates: start: 20140607, end: 20140619
  3. SELENICA-R [Concomitant]
     Active Substance: SELENIUM
     Indication: MOOD SWINGS
     Dosage: 400MG PER DAY
     Route: 048
     Dates: start: 20140110

REACTIONS (8)
  - Ocular hyperaemia [Unknown]
  - Stevens-Johnson syndrome [Recovering/Resolving]
  - Conjunctival hyperaemia [Unknown]
  - Pyrexia [Recovered/Resolved]
  - Rash macular [Unknown]
  - Generalised erythema [Unknown]
  - Erythema of eyelid [Unknown]
  - Rash [Recovered/Resolved]

NARRATIVE: CASE EVENT DATE: 20140617
